FAERS Safety Report 9586577 (Version 2)
Quarter: 2013Q4

REPORT INFORMATION
  Report Type: Report from Study
  Country: KR (occurrence: KR)
  Receive Date: 20131003
  Receipt Date: 20131210
  Transmission Date: 20140711
  Serious: Yes (Death)
  Sender: FDA-Public Use
  Company Number: KR-SA-2013SA094990

PATIENT
  Age: 52 Year
  Sex: Female
  Weight: 54 kg

DRUGS (6)
  1. LANTUS [Suspect]
     Indication: DIABETES MELLITUS
     Dosage: DOSE:34 UNIT(S)
     Route: 058
     Dates: start: 20120920
  2. DIAMICRON MR [Concomitant]
  3. GLUPA [Concomitant]
  4. MEGACE [Concomitant]
  5. JANUVIA [Concomitant]
  6. TRIDOL [Concomitant]

REACTIONS (2)
  - Pancreatic carcinoma [Fatal]
  - Metastases to liver [Fatal]
